FAERS Safety Report 21054461 (Version 2)
Quarter: 2022Q3

REPORT INFORMATION
  Report Type: Spontaneous
  Country: TR (occurrence: TR)
  Receive Date: 20220707
  Receipt Date: 20220711
  Transmission Date: 20221027
  Serious: Yes (Other)
  Sender: FDA-Public Use
  Company Number: TR-PFIZER INC-PV202200013901

PATIENT
  Age: 72 Year
  Sex: Male
  Weight: 83 kg

DRUGS (5)
  1. SUTENT [Suspect]
     Active Substance: SUNITINIB MALATE
     Dosage: 50 MG, CYCLIC (4+2)
     Dates: start: 201611
  2. SUTENT [Suspect]
     Active Substance: SUNITINIB MALATE
     Dosage: 50 MG, CYCLIC (2+1)
  3. SUTENT [Suspect]
     Active Substance: SUNITINIB MALATE
     Dosage: 37.5 MG, CYCLIC (4+2)
  4. SUTENT [Suspect]
     Active Substance: SUNITINIB MALATE
     Dosage: 37.5 CYCLIC, (2+1)
  5. ZOLEDRONIC ACID [Suspect]
     Active Substance: ZOLEDRONIC ACID
     Dosage: 4 MG
     Dates: start: 201611

REACTIONS (4)
  - Spinal ligament ossification [Unknown]
  - Stomatitis [Unknown]
  - Disease progression [Unknown]
  - Diarrhoea [Unknown]

NARRATIVE: CASE EVENT DATE: 20170101
